FAERS Safety Report 6692270-4 (Version None)
Quarter: 2010Q2

REPORT INFORMATION
  Report Type: 
  Country: None (occurrence: None)
  Receive Date: 20100422
  Receipt Date: 20100414
  Transmission Date: 20101027
  Serious: Yes (Hospitalization)
  Sender: FDA-Public Use
  Company Number: FR-AMGEN-QUU393777

PATIENT
  Sex: Male

DRUGS (18)
  1. NEUPOGEN [Suspect]
     Indication: NEUTROPENIA
     Route: 042
     Dates: start: 20091224, end: 20100104
  2. RIFADIN [Suspect]
     Route: 048
     Dates: start: 20100111, end: 20100116
  3. FORTUM [Suspect]
     Route: 042
     Dates: start: 20091226, end: 20100107
  4. BACTRIM [Suspect]
     Route: 048
     Dates: start: 20091215, end: 20100119
  5. VANCOMYCIN [Suspect]
     Route: 042
     Dates: start: 20091231, end: 20100115
  6. NEXIUM [Suspect]
     Route: 048
     Dates: start: 20091220, end: 20100119
  7. VORICONAZOLE [Suspect]
  8. PERFALGAN [Suspect]
     Route: 042
     Dates: start: 20091228, end: 20100104
  9. PLITICAN [Concomitant]
     Route: 042
     Dates: start: 20091226, end: 20100106
  10. GENTAMYCIN SULFATE [Concomitant]
     Route: 042
     Dates: start: 20091231, end: 20100107
  11. COLIMYCINE [Concomitant]
     Route: 048
     Dates: start: 20091226, end: 20100106
  12. ALBUMIN (HUMAN) [Concomitant]
     Route: 042
     Dates: start: 20100103, end: 20100104
  13. UNSPECIFIED ANTINEOPLASTIC AGENT [Concomitant]
     Route: 037
     Dates: start: 20091218
  14. ZOPHREN [Concomitant]
     Route: 042
     Dates: start: 20091230, end: 20100106
  15. DUPHALAC [Concomitant]
     Route: 048
     Dates: start: 20091222, end: 20100119
  16. NUBAIN [Concomitant]
     Route: 042
     Dates: start: 20091231, end: 20091231
  17. FUNGIZONE [Concomitant]
     Route: 048
     Dates: start: 20091218, end: 20100121
  18. MORPHINE [Concomitant]
     Route: 042
     Dates: start: 20100101, end: 20100104

REACTIONS (1)
  - STEVENS-JOHNSON SYNDROME [None]
